FAERS Safety Report 5139114-X (Version None)
Quarter: 2006Q4

REPORT INFORMATION
  Report Type: 
  Country: None (occurrence: None)
  Receive Date: 20061030
  Receipt Date: 20060622
  Transmission Date: 20070319
  Serious: No
  Sender: FDA-Public Use
  Company Number: US-GLAXOSMITHKLINE-A0610023A

PATIENT
  Sex: Male

DRUGS (6)
  1. ADVAIR HFA [Suspect]
     Indication: BRONCHITIS
     Dosage: 1PUFF PER DAY
     Route: 055
  2. LIPITOR [Concomitant]
  3. ASPIRIN [Concomitant]
  4. NEXIUM [Concomitant]
  5. MUCINEX [Concomitant]
  6. ALLBEE WITH C [Concomitant]

REACTIONS (2)
  - BRONCHITIS [None]
  - DRUG ADMINISTRATION ERROR [None]
